FAERS Safety Report 6766878-1 (Version None)
Quarter: 2010Q2

REPORT INFORMATION
  Report Type: 
  Country: None (occurrence: None)
  Receive Date: 20100611
  Receipt Date: 20100604
  Transmission Date: 20101027
  Serious: Yes (Hospitalization)
  Sender: FDA-Public Use
  Company Number: PHHO2010GB08454

PATIENT
  Sex: Male

DRUGS (5)
  1. ZOLEDRONATE T29581+SOLINJ+BM [Suspect]
     Indication: METASTASES TO BONE
     Dosage: 4MG
     Route: 042
     Dates: start: 20100303
  2. DOCETAXEL [Suspect]
     Dosage: 146MG
     Route: 042
     Dates: start: 20100303
  3. CALCIUM CARBONATE [Concomitant]
  4. VITAMIN D [Concomitant]
  5. HORMONES [Concomitant]

REACTIONS (2)
  - DYSPNOEA [None]
  - NEUTROPENIA [None]
